FAERS Safety Report 13513649 (Version 1)
Quarter: 2017Q2

REPORT INFORMATION
  Report Type: Spontaneous
  Country: US (occurrence: US)
  Receive Date: 20170504
  Receipt Date: 20170504
  Transmission Date: 20170830
  Serious: No
  Sender: FDA-Public Use
  Company Number: US-ARBOR PHARMACEUTICALS, LLC-US-2016ARB002288

PATIENT

DRUGS (2)
  1. ERY-PED [Suspect]
     Active Substance: ERYTHROMYCIN ETHYLSUCCINATE
     Indication: IMPAIRED GASTRIC EMPTYING
     Dosage: 1 ML, TID
     Dates: start: 20160715
  2. OMEPRAZOLE. [Concomitant]
     Active Substance: OMEPRAZOLE
     Indication: GASTROOESOPHAGEAL REFLUX DISEASE
     Dosage: 4 ML, QD

REACTIONS (4)
  - Off label use [Unknown]
  - Drug ineffective [Unknown]
  - Infantile spitting up [Unknown]
  - Drug effect variable [Unknown]

NARRATIVE: CASE EVENT DATE: 2016
